FAERS Safety Report 8600378-9 (Version None)
Quarter: 2012Q3

REPORT INFORMATION
  Report Type: 
  Country: None (occurrence: None)
  Receive Date: 20120817
  Receipt Date: 20120814
  Transmission Date: 20120928
  Serious: No
  Sender: FDA-Public Use
  Company Number: US-PFIZER INC-2012156204

PATIENT
  Age: 58 Year
  Sex: Female
  Weight: 112 kg

DRUGS (1)
  1. PROTONIX [Suspect]
     Indication: GASTROOESOPHAGEAL REFLUX DISEASE
     Dosage: 40 MG, DAILY
     Route: 048

REACTIONS (2)
  - SOMNOLENCE [None]
  - INSOMNIA [None]
